FAERS Safety Report 6547482-7 (Version None)
Quarter: 2010Q1

REPORT INFORMATION
  Report Type: 
  Country: None (occurrence: None)
  Receive Date: 20100122
  Receipt Date: 20100115
  Transmission Date: 20100710
  Serious: Yes (Hospitalization)
  Sender: FDA-Public Use
  Company Number: FR-ROCHE-679731

PATIENT
  Sex: Female

DRUGS (8)
  1. AVASTIN [Suspect]
     Indication: COLORECTAL CANCER RECURRENT
     Dosage: STRENGTH: 25 MG/ML
     Route: 042
     Dates: start: 20081216, end: 20090201
  2. AVASTIN [Suspect]
     Route: 042
     Dates: start: 20090201
  3. 5-FU [Suspect]
     Indication: COLORECTAL CANCER RECURRENT
     Dosage: 600 MG AND THEN 1.6 GRAM PER 46 HOURS
     Route: 040
     Dates: start: 20081216, end: 20090201
  4. 5-FU [Suspect]
     Route: 040
     Dates: start: 20090201
  5. ELVORINE [Suspect]
     Indication: COLORECTAL CANCER RECURRENT
     Route: 042
     Dates: start: 20081216, end: 20090201
  6. ELVORINE [Suspect]
     Route: 042
     Dates: start: 20090201
  7. ELOXATIN [Suspect]
     Indication: COLORECTAL CANCER RECURRENT
     Route: 042
     Dates: start: 20090107
  8. ELOXATIN [Suspect]
     Route: 042
     Dates: start: 20090201, end: 20090701

REACTIONS (2)
  - HAEMODIALYSIS [None]
  - RENAL FAILURE [None]
